FAERS Safety Report 9357932 (Version 1)
Quarter: 2013Q2

REPORT INFORMATION
  Report Type: Spontaneous
  Country: US (occurrence: None)
  Receive Date: 20130619
  Receipt Date: 20130619
  Transmission Date: 20140414
  Serious: No
  Sender: FDA-Public Use
  Company Number: None

PATIENT
  Sex: 0

DRUGS (1)
  1. OCELLA [Suspect]
     Indication: CONTRACEPTION
     Dosage: OCELLA 1 DAY PO
     Route: 048
     Dates: start: 201205, end: 201306

REACTIONS (2)
  - Deep vein thrombosis [None]
  - Injury [None]
